FAERS Safety Report 6327553-0 (Version None)
Quarter: 2009Q3

REPORT INFORMATION
  Report Type: 
  Country: None (occurrence: None)
  Receive Date: 20090825
  Receipt Date: 20090817
  Transmission Date: 20100115
  Serious: Yes (Other)
  Sender: FDA-Public Use
  Company Number: KR-ELI_LILLY_AND_COMPANY-KR200908003341

PATIENT
  Age: 30 Year
  Sex: Male

DRUGS (3)
  1. HUMALOG [Suspect]
     Indication: TYPE 2 DIABETES MELLITUS
     Dosage: 40 IU, DAILY (1/D)
     Route: 058
     Dates: end: 20090812
  2. HUMALOG [Suspect]
     Dosage: 40 IU, DAILY (1/D)
     Route: 058
     Dates: start: 20090813, end: 20090815
  3. HUMALOG [Suspect]
     Dosage: 40 IU, DAILY (1/D)
     Route: 058
     Dates: start: 20090816

REACTIONS (4)
  - BLOOD GLUCOSE INCREASED [None]
  - DEVICE LEAKAGE [None]
  - DRUG INEFFECTIVE [None]
  - RENAL IMPAIRMENT [None]
